FAERS Safety Report 21185530 (Version 1)
Quarter: 2022Q3

REPORT INFORMATION
  Report Type: Report from Study
  Country: GB (occurrence: GB)
  Receive Date: 20220808
  Receipt Date: 20220808
  Transmission Date: 20221027
  Serious: Yes (Other)
  Sender: FDA-Public Use
  Company Number: GB-NOVARTISPH-NVSC2022GB178204

PATIENT
  Sex: Male

DRUGS (1)
  1. OMNITROPE [Suspect]
     Active Substance: SOMATROPIN
     Indication: Hypothalamo-pituitary disorder
     Dosage: 300 UG (MCG), QD
     Route: 058
     Dates: start: 2017

REACTIONS (4)
  - Adrenal insufficiency [Unknown]
  - Malaise [Unknown]
  - Stress [Unknown]
  - Expired product administered [Unknown]
